FAERS Safety Report 4289117-2 (Version None)
Quarter: 2004Q1

REPORT INFORMATION
  Report Type: 
  Country: None (occurrence: None)
  Receive Date: 20040210
  Receipt Date: 20040202
  Transmission Date: 20041129
  Serious: Yes (Hospitalization)
  Sender: FDA-Public Use
  Company Number: 200410225JP

PATIENT
  Age: 74 Year
  Sex: Male

DRUGS (1)
  1. TAXOTERE [Suspect]
     Indication: SWEAT GLAND TUMOUR
     Dosage: DOSE: 30-40
     Route: 041
     Dates: start: 20031201, end: 20040106

REACTIONS (3)
  - COUGH [None]
  - MALAISE [None]
  - RESPIRATORY DISORDER [None]
